FAERS Safety Report 25963819 (Version 1)
Quarter: 2025Q4

REPORT INFORMATION
  Report Type: Spontaneous
  Country: EU (occurrence: EU)
  Receive Date: 20251027
  Receipt Date: 20251027
  Transmission Date: 20260118
  Serious: Yes (Disabling)
  Sender: BAUSCH AND LOMB
  Company Number: None

PATIENT
  Age: 56 Year
  Sex: Female
  Weight: 89.5 kg

DRUGS (8)
  1. LORAZEPAM [Suspect]
     Active Substance: LORAZEPAM
     Indication: Anxiety
     Dosage: 2.5 MG/J
     Route: 048
     Dates: start: 2022
  2. HYDROCORTISONE [Suspect]
     Active Substance: HYDROCORTISONE
     Indication: Axial spondyloarthritis
     Dosage: 10 MG/J
     Route: 048
     Dates: start: 2022
  3. YUFLYMA [Suspect]
     Active Substance: ADALIMUMAB-AATY
     Indication: Axial spondyloarthritis
     Dosage: 1 INJECTION EVERY 2 WEEKS THEN 1 INJECTION EVERY 10 DAYS STARTING FROM 25/02/2025
     Route: 058
     Dates: start: 20241001, end: 20250730
  4. PRAMIPEXOLE [Suspect]
     Active Substance: PRAMIPEXOLE
     Indication: Product used for unknown indication
     Dosage: 0.18 MG/J
     Route: 048
  5. OXYCODONE [Suspect]
     Active Substance: OXYCODONE
     Indication: Axial spondyloarthritis
     Dosage: 10 MG / 2 TIMES PER DAY
     Route: 048
     Dates: start: 2022
  6. OXYCODONE HYDROCHLORIDE [Suspect]
     Active Substance: OXYCODONE HYDROCHLORIDE
     Indication: Axial spondyloarthritis
     Dosage: 10MG EVERY 4 HOURS AS NEEDED
     Route: 048
     Dates: start: 2022
  7. BILASTINE [Concomitant]
     Active Substance: BILASTINE
     Indication: Product used for unknown indication
     Dosage: 20 MG/J
     Route: 048
  8. MELATONIN [Concomitant]
     Active Substance: MELATONIN
     Indication: Insomnia
     Dosage: 2 MG/J
     Route: 048

REACTIONS (1)
  - Insomnia [Not Recovered/Not Resolved]

NARRATIVE: CASE EVENT DATE: 20241101
